FAERS Safety Report 4654005-6 (Version None)
Quarter: 2005Q2

REPORT INFORMATION
  Report Type: 
  Country: None (occurrence: None)
  Receive Date: 20050504
  Receipt Date: 20050422
  Transmission Date: 20051028
  Serious: Yes (Hospitalization)
  Sender: FDA-Public Use
  Company Number: S05-NOR-01577-01

PATIENT
  Age: 81 Year
  Sex: Male

DRUGS (6)
  1. CITALOPRAM HYDROBROMIDE [Suspect]
     Indication: DEPRESSION
     Dosage: 40 MG QD PO
     Route: 048
  2. BEXTRA [Suspect]
     Dosage: 40 MG QD PO
     Route: 048
  3. ALBYL-E [Suspect]
     Indication: CORONARY ARTERY DISEASE
     Dosage: 160 MG QD PO
     Route: 048
  4. LASIX RETARD (FUROSEMIDE) [Concomitant]
  5. NEXIUM [Concomitant]
  6. SELO-ZOK (METOPROLOL SUCCINATE) [Concomitant]

REACTIONS (2)
  - DUODENAL ULCER HAEMORRHAGE [None]
  - HAEMOGLOBIN DECREASED [None]
